FAERS Safety Report 5525082-5 (Version None)
Quarter: 2007Q4

REPORT INFORMATION
  Report Type: 
  Country: None (occurrence: None)
  Receive Date: 20071119
  Receipt Date: 20071103
  Transmission Date: 20080405
  Serious: Yes (Hospitalization)
  Sender: FDA-Public Use
  Company Number: MPS1-10780

PATIENT
  Age: 5 Year
  Sex: 0

DRUGS (2)
  1. MYOZYME [Suspect]
     Indication: MUCOPOLYSACCHARIDOSIS I
  2. HEPARIN [Suspect]
     Indication: DRUG USE FOR UNKNOWN INDICATION

REACTIONS (1)
  - IDIOPATHIC THROMBOCYTOPENIC PURPURA [None]
